FAERS Safety Report 14166740 (Version 1)
Quarter: 2017Q4

REPORT INFORMATION
  Report Type: Spontaneous
  Country: US (occurrence: US)
  Receive Date: 20171107
  Receipt Date: 20171107
  Transmission Date: 20180321
  Serious: No
  Sender: FDA-Public Use
  Company Number: US-BAUSCH-BL-2016-031546

PATIENT
  Age: 74 Year
  Sex: Female

DRUGS (6)
  1. ZIRGAN [Suspect]
     Active Substance: GANCICLOVIR
     Indication: CONJUNCTIVITIS
     Dosage: BOTH EYELIDS
     Route: 047
     Dates: start: 20161202
  2. LOTEMAX [Concomitant]
     Active Substance: LOTEPREDNOL ETABONATE
     Indication: OCULAR HYPERAEMIA
     Route: 047
  3. RESTASIS [Concomitant]
     Active Substance: CYCLOSPORINE
     Indication: PRODUCT USED FOR UNKNOWN INDICATION
     Route: 047
  4. ZIRGAN [Suspect]
     Active Substance: GANCICLOVIR
     Dosage: BOTH EYELIDS
     Route: 047
     Dates: start: 201612, end: 201612
  5. ZIRGAN [Suspect]
     Active Substance: GANCICLOVIR
     Dosage: BOTH EYELIDS
     Route: 047
     Dates: start: 201612
  6. GENTEAL MILD [Concomitant]
     Active Substance: HYPROMELLOSE 2910 (4000 MPA.S)
     Indication: PRODUCT USED FOR UNKNOWN INDICATION
     Route: 047

REACTIONS (2)
  - Treatment noncompliance [Unknown]
  - Off label use [Recovered/Resolved]

NARRATIVE: CASE EVENT DATE: 20161202
